FAERS Safety Report 8504883-5 (Version None)
Quarter: 2012Q3

REPORT INFORMATION
  Report Type: 
  Country: None (occurrence: None)
  Receive Date: 20120712
  Receipt Date: 20110419
  Transmission Date: 20120928
  Serious: No
  Sender: FDA-Public Use
  Company Number: US-BAYER-2011-003169

PATIENT
  Sex: Male

DRUGS (3)
  1. ALEVE (CAPLET) [Suspect]
     Dosage: 2 DF, QD, BOTTLE COUNT 24S
     Route: 048
  2. ALEVE (CAPLET) [Suspect]
     Indication: ARTHRALGIA
     Dosage: 2 DF, QD, BOTTLE COUNT 100S
     Route: 048
  3. ALEVE (CAPLET) [Suspect]
     Dosage: 2 DF, QD, BOTTLE COUNT 100S
     Route: 048

REACTIONS (1)
  - ARTHRALGIA [None]
